FAERS Safety Report 17164305 (Version 1)
Quarter: 2019Q4

REPORT INFORMATION
  Report Type: Spontaneous
  Country: GB (occurrence: GB)
  Receive Date: 20191217
  Receipt Date: 20191217
  Transmission Date: 20200122
  Serious: Yes (Hospitalization, Other)
  Sender: FDA-Public Use
  Company Number: GB-PFIZER INC-2019533718

PATIENT
  Age: 25 Year
  Sex: Male

DRUGS (6)
  1. LSD [Suspect]
     Active Substance: LYSERGIDE
     Indication: SUBSTANCE USE
     Dosage: UNK
  2. KETAMINE HCL [Suspect]
     Active Substance: KETAMINE HYDROCHLORIDE
     Indication: SUBSTANCE USE
     Dosage: UNK
  3. DMT [DIMETHYLTRYPTAMINE] [Suspect]
     Active Substance: DIMETHYLTRYPTAMINE
     Indication: SUBSTANCE USE
     Dosage: UNK
  4. CANNABIS [Suspect]
     Active Substance: CANNABIS SATIVA SUBSP. INDICA TOP
     Indication: SUBSTANCE USE
     Dosage: UNK
  5. CITALOPRAM [Suspect]
     Active Substance: CITALOPRAM HYDROBROMIDE
     Indication: ANTIDEPRESSANT THERAPY
     Dosage: 40 MG, UNK
  6. METHYLENEDIOXYMETHAMPHETAMINE [Suspect]
     Active Substance: MIDOMAFETAMINE
     Indication: SUBSTANCE USE
     Dosage: UNK

REACTIONS (4)
  - Hallucination, auditory [Recovered/Resolved]
  - Substance-induced psychotic disorder [Recovered/Resolved]
  - Substance abuse [Unknown]
  - Alcoholic psychosis [Recovered/Resolved]
